FAERS Safety Report 22210618 (Version 4)
Quarter: 2023Q2

REPORT INFORMATION
  Report Type: Report from Study
  Country: BR (occurrence: BR)
  Receive Date: 20230414
  Receipt Date: 20230626
  Transmission Date: 20230721
  Serious: Yes (Other)
  Sender: FDA-Public Use
  Company Number: BR-NOVOPROD-1045057

PATIENT
  Age: 6 Year
  Sex: Female
  Weight: 34 kg

DRUGS (2)
  1. TRESIBA [Suspect]
     Active Substance: INSULIN DEGLUDEC
     Indication: Type 1 diabetes mellitus
     Dosage: 22 IU, QD
     Dates: start: 2021
  2. INSULIN ASPART [Concomitant]
     Active Substance: INSULIN ASPART
     Indication: Type 1 diabetes mellitus
     Dosage: UNK
     Dates: start: 2021

REACTIONS (6)
  - Hyperglycaemia [Not Recovered/Not Resolved]
  - Device failure [Unknown]
  - Device malfunction [Unknown]
  - Product quality issue [Unknown]
  - Product communication issue [Unknown]
  - Off label use [Unknown]

NARRATIVE: CASE EVENT DATE: 20230101
